FAERS Safety Report 7621415-4 (Version None)
Quarter: 2011Q3

REPORT INFORMATION
  Report Type: 
  Country: None (occurrence: None)
  Receive Date: 20110719
  Receipt Date: 20110413
  Transmission Date: 20111222
  Serious: No
  Sender: FDA-Public Use
  Company Number: US-MYLANLABS-2011S1007633

PATIENT
  Age: 60 Year
  Sex: Male

DRUGS (7)
  1. ZYPREXA [Suspect]
     Indication: DEPRESSION
     Route: 048
  2. DIVALPROEX SODIUM EXTENDED RELEASE [Suspect]
     Indication: BIPOLAR DISORDER
     Route: 048
     Dates: start: 20110101
  3. PROVIGIL [Concomitant]
     Indication: INSOMNIA
     Route: 048
  4. PERPHENAZINE AND AMITRIPTYLINE HCL TABLETS, USP [Concomitant]
     Indication: BIPOLAR DISORDER
     Route: 048
  5. TOPAMAX [Concomitant]
     Indication: MOOD SWINGS
     Route: 048
  6. XANAX [Concomitant]
     Indication: NERVOUSNESS
     Route: 048
  7. AMITRIPTYLINE HCL [Concomitant]
     Indication: SCHIZOPHRENIA
     Route: 048

REACTIONS (1)
  - WEIGHT INCREASED [None]
